FAERS Safety Report 8814044 (Version 1)
Quarter: 2012Q4

REPORT INFORMATION
  Report Type: 
  Country: US (occurrence: US)
  Receive Date: 20120928
  Receipt Date: 20120928
  Transmission Date: 20130627
  Serious: No
  Sender: FDA-Public Use
  Company Number: US-PFIZER INC-2012239515

PATIENT
  Age: 65 Year
  Sex: Female
  Weight: 90.7 kg

DRUGS (5)
  1. NEURONTIN [Suspect]
     Indication: ARTHRITIS
     Dosage: 300 mg, 1x/day
     Route: 048
     Dates: start: 20120919, end: 20120924
  2. NEURONTIN [Suspect]
     Indication: NEURALGIA
     Dosage: 600mg (2 of 300mg), 1x/day
     Route: 048
     Dates: start: 20120924, end: 20120924
  3. LUMIGAN [Concomitant]
     Indication: INTRAOCULAR PRESSURE TEST ABNORMAL
     Dosage: one drop in each eye, 1x/day
     Route: 047
  4. ATENOLOL [Concomitant]
     Indication: HYPERTENSION
     Dosage: UNK
  5. HYDROCHLOROTHIAZIDE [Concomitant]
     Indication: HYPERTENSION
     Dosage: UNK

REACTIONS (2)
  - Dizziness [Recovering/Resolving]
  - Hypertension [Unknown]
